FAERS Safety Report 21298551 (Version 1)
Quarter: 2022Q3

REPORT INFORMATION
  Report Type: Spontaneous
  Country: CN (occurrence: CN)
  Receive Date: 20220906
  Receipt Date: 20220906
  Transmission Date: 20221027
  Serious: Yes (Hospitalization, Other)
  Sender: FDA-Public Use
  Company Number: CN-PFIZER INC-202201110846

PATIENT
  Age: 59 Year
  Sex: Male

DRUGS (1)
  1. SUTENT [Suspect]
     Active Substance: SUNITINIB MALATE
     Dosage: 37.5 MG, 1X/DAY,  TWO WEEKS ON AND ONE WEEK OFF
     Route: 048
     Dates: start: 20220601

REACTIONS (3)
  - Hepatic function abnormal [Not Recovered/Not Resolved]
  - Blood bilirubin increased [Not Recovered/Not Resolved]
  - Drug-induced liver injury [Unknown]

NARRATIVE: CASE EVENT DATE: 20220721
